FAERS Safety Report 10919069 (Version 1)
Quarter: 2015Q1

REPORT INFORMATION
  Report Type: Spontaneous
  Country: MX (occurrence: MX)
  Receive Date: 20150316
  Receipt Date: 20150316
  Transmission Date: 20150721
  Serious: Yes (Hospitalization)
  Sender: FDA-Public Use
  Company Number: MX-ROXANE LABORATORIES, INC.-2015-RO-00509RO

PATIENT
  Age: 45 Year
  Sex: Female
  Weight: 65 kg

DRUGS (5)
  1. INDOMETHACIN. [Concomitant]
     Active Substance: INDOMETHACIN
     Route: 065
     Dates: start: 200905, end: 20090917
  2. TOCILIZUMAB [Suspect]
     Active Substance: TOCILIZUMAB
     Indication: RHEUMATOID ARTHRITIS
     Route: 042
  3. PREDNISONE. [Concomitant]
     Active Substance: PREDNISONE
     Route: 065
     Dates: start: 200905
  4. METHOTREXATE [Suspect]
     Active Substance: METHOTREXATE
     Indication: PRODUCT USED FOR UNKNOWN INDICATION
     Route: 048
     Dates: start: 200905, end: 20090917
  5. MACRODANTIN [Suspect]
     Active Substance: NITROFURANTOIN
     Indication: PRODUCT USED FOR UNKNOWN INDICATION
     Dosage: 200 MG
     Route: 065
     Dates: start: 20090826, end: 20090911

REACTIONS (1)
  - Palpable purpura [Recovered/Resolved]

NARRATIVE: CASE EVENT DATE: 20090911
